FAERS Safety Report 5074781-0 (Version None)
Quarter: 2006Q3

REPORT INFORMATION
  Report Type: 
  Country: None (occurrence: None)
  Receive Date: 20060807
  Receipt Date: 20060725
  Transmission Date: 20061208
  Serious: Yes (Hospitalization)
  Sender: FDA-Public Use
  Company Number: 2006092142

PATIENT
  Age: 60 Year
  Sex: Male

DRUGS (1)
  1. ZYVOX [Suspect]
     Indication: PNEUMONIA

REACTIONS (4)
  - BLISTER [None]
  - ERYTHEMA MULTIFORME [None]
  - MUCOUS MEMBRANE DISORDER [None]
  - TOXIC EPIDERMAL NECROLYSIS [None]
